FAERS Safety Report 9516670 (Version 2)
Quarter: 2013Q4

REPORT INFORMATION
  Report Type: Spontaneous
  Country: GB (occurrence: GB)
  Receive Date: 20130911
  Receipt Date: 20131029
  Transmission Date: 20140711
  Serious: Yes (Other)
  Sender: FDA-Public Use
  Company Number: GB-JNJFOC-20130902240

PATIENT
  Age: 65 Year
  Sex: 0

DRUGS (6)
  1. DOXORUBICIN [Suspect]
     Indication: BURKITT^S LYMPHOMA
     Route: 042
  2. DOXORUBICIN [Suspect]
     Indication: BURKITT^S LYMPHOMA
     Route: 042
  3. CYCLOPHOSPHAMIDE [Suspect]
     Indication: BURKITT^S LYMPHOMA
     Route: 065
  4. RITUXIMAB [Suspect]
     Indication: BURKITT^S LYMPHOMA
     Route: 065
  5. ONCOVIN [Suspect]
     Indication: BURKITT^S LYMPHOMA
     Route: 065
  6. METHOTREXATE [Suspect]
     Indication: BURKITT^S LYMPHOMA
     Route: 037

REACTIONS (1)
  - Subdural haematoma [Recovered/Resolved with Sequelae]
